FAERS Safety Report 5715716-4 (Version None)
Quarter: 2008Q2

REPORT INFORMATION
  Report Type: 
  Country: None (occurrence: None)
  Receive Date: 20080424
  Receipt Date: 20080417
  Transmission Date: 20081010
  Serious: No
  Sender: FDA-Public Use
  Company Number: US-BAYER-200820292NA

PATIENT
  Sex: Female
  Weight: 75 kg

DRUGS (3)
  1. LEUKINE [Suspect]
     Indication: NEUTROPENIA
     Dosage: UNIT DOSE: 500 ?G
     Route: 058
     Dates: start: 20050101, end: 20080201
  2. DEPAKOTE [Concomitant]
     Indication: CONVULSION
  3. NEURONTIN [Concomitant]

REACTIONS (6)
  - BONE PAIN [None]
  - CHILLS [None]
  - INJECTION SITE ERYTHEMA [None]
  - INJECTION SITE PRURITUS [None]
  - NAUSEA [None]
  - PYREXIA [None]
